FAERS Safety Report 18316122 (Version 1)
Quarter: 2020Q3

REPORT INFORMATION
  Report Type: Spontaneous
  Country: US (occurrence: US)
  Receive Date: 20200927
  Receipt Date: 20200927
  Transmission Date: 20201103
  Serious: No
  Sender: FDA-Public Use
  Company Number: US-ASTRAZENECA-2020SF15538

PATIENT
  Sex: Female

DRUGS (1)
  1. FASENRA [Suspect]
     Active Substance: BENRALIZUMAB
     Dosage: UNKNOWN, ONCE/SINGLE ADMINISTRATION
     Route: 058
     Dates: start: 20200820

REACTIONS (2)
  - Urticaria [Unknown]
  - Wheezing [Unknown]

NARRATIVE: CASE EVENT DATE: 202008
